FAERS Safety Report 24187268 (Version 1)
Quarter: 2024Q3

REPORT INFORMATION
  Report Type: Spontaneous
  Country: US (occurrence: US)
  Receive Date: 20240808
  Receipt Date: 20240808
  Transmission Date: 20241016
  Serious: Yes (Death)
  Sender: ACELLA
  Company Number: US-ACELLA PHARMACEUTICALS, LLC-2024ALO00366

PATIENT
  Age: 78 Year
  Sex: Male

DRUGS (1)
  1. NP THYROID [Suspect]
     Active Substance: LEVOTHYROXINE\LIOTHYRONINE
     Dosage: 90 MG, 1X/DAY
     Route: 048

REACTIONS (7)
  - Feeding disorder [Fatal]
  - Weight decreased [Fatal]
  - Muscle spasms [Unknown]
  - Diarrhoea [Unknown]
  - Nausea [Unknown]
  - Abdominal discomfort [Unknown]
  - Suspected product tampering [Unknown]

NARRATIVE: CASE EVENT DATE: 20221001
